FAERS Safety Report 12975718 (Version 1)
Quarter: 2016Q4

REPORT INFORMATION
  Report Type: Spontaneous
  Country: GB (occurrence: GB)
  Receive Date: 20161125
  Receipt Date: 20161125
  Transmission Date: 20170207
  Serious: Yes (Congenital Anomaly, Other)
  Sender: FDA-Public Use
  Company Number: GB-JUBILANT PHARMA LTD-2016GB000441

PATIENT
  Age: 6 Day
  Sex: Male

DRUGS (2)
  1. SODIUM IODIDE I-131 [Suspect]
     Active Substance: SODIUM IODIDE I-131
     Indication: BASEDOW^S DISEASE
     Dosage: 370 MBQ, SINGLE DOSE
     Route: 064
     Dates: start: 198211, end: 198211
  2. THYROXINE REPLACEMENT THERAPY [Concomitant]
     Indication: HYPOTHYROIDISM
     Dosage: UNK
     Route: 064
     Dates: start: 1983, end: 1983

REACTIONS (5)
  - Clinodactyly [Not Recovered/Not Resolved]
  - Toxic goitre [Recovered/Resolved]
  - Foetal growth restriction [Unknown]
  - Atrophy [Not Recovered/Not Resolved]
  - Foetal exposure during pregnancy [Not Recovered/Not Resolved]

NARRATIVE: CASE EVENT DATE: 1983
